FAERS Safety Report 17834957 (Version 1)
Quarter: 2020Q2

REPORT INFORMATION
  Report Type: Spontaneous
  Country: FR (occurrence: FR)
  Receive Date: 20200528
  Receipt Date: 20200528
  Transmission Date: 20200714
  Serious: Yes (Hospitalization)
  Sender: FDA-Public Use
  Company Number: NVSC2020FR146484

PATIENT
  Age: 79 Year
  Sex: Female
  Weight: 73 kg

DRUGS (4)
  1. MONTELUKAST SODIUM. [Interacting]
     Active Substance: MONTELUKAST SODIUM
     Indication: PRODUCT USED FOR UNKNOWN INDICATION
     Dosage: 10 MG, QD
     Route: 048
     Dates: start: 20200305, end: 20200310
  2. SERETIDE [Interacting]
     Active Substance: FLUTICASONE PROPIONATE\SALMETEROL XINAFOATE
     Indication: CHRONIC OBSTRUCTIVE PULMONARY DISEASE
     Dosage: 1 DF, QD
     Route: 055
     Dates: start: 20200305, end: 20200309
  3. SOLUPRED [PREDNISOLONE METASULFOBENZOATE SODIUM] [Interacting]
     Active Substance: PREDNISOLONE SODIUM METAZOATE
     Indication: CHRONIC OBSTRUCTIVE PULMONARY DISEASE
     Dosage: 40 MG, QD
     Route: 048
     Dates: start: 20200305, end: 20200309
  4. ULTIBRO BREEZHALER [Suspect]
     Active Substance: GLYCOPYRRONIUM\INDACATEROL
     Indication: CHRONIC OBSTRUCTIVE PULMONARY DISEASE
     Dosage: 1 DF, QD
     Route: 055
     Dates: start: 20200305

REACTIONS (4)
  - Confusional state [Recovering/Resolving]
  - Urinary retention [Recovered/Resolved]
  - Aggression [Recovering/Resolving]
  - Agitation [Recovering/Resolving]

NARRATIVE: CASE EVENT DATE: 20200309
